FAERS Safety Report 8304346-6 (Version None)
Quarter: 2012Q2

REPORT INFORMATION
  Report Type: 
  Country: None (occurrence: None)
  Receive Date: 20120423
  Receipt Date: 20120417
  Transmission Date: 20120825
  Serious: Yes (Hospitalization, Other)
  Sender: FDA-Public Use
  Company Number: US-PFIZER INC-2012038300

PATIENT
  Sex: Female

DRUGS (7)
  1. CYMBALTA [Concomitant]
     Indication: DEPRESSION
     Dosage: UNK
     Dates: start: 20000101
  2. ALPRAZOLAM [Concomitant]
     Indication: ANXIETY
     Dosage: UNK
     Dates: start: 20010101
  3. TRAZODONE [Concomitant]
     Indication: INSOMNIA
     Dosage: UNK
     Dates: start: 20020101
  4. CHANTIX [Suspect]
     Dosage: 0.5MG/1MG
     Dates: start: 20080201, end: 20080301
  5. CHANTIX [Suspect]
     Indication: SMOKING CESSATION THERAPY
     Dosage: 0.5MG/1MG
     Dates: start: 20070201, end: 20070301
  6. HYDROCODONE [Concomitant]
     Indication: PAIN
     Dosage: UNK
     Dates: start: 20010101, end: 20110101
  7. OXYCODONE [Concomitant]
     Indication: PAIN
     Dosage: UNK
     Dates: start: 20010101, end: 20110101

REACTIONS (5)
  - ANXIETY [None]
  - SUICIDE ATTEMPT [None]
  - INSOMNIA [None]
  - DEPRESSION [None]
  - ABNORMAL BEHAVIOUR [None]
